FAERS Safety Report 6512439-9 (Version None)
Quarter: 2009Q4

REPORT INFORMATION
  Report Type: 
  Country: None (occurrence: None)
  Receive Date: 20091222
  Receipt Date: 20090928
  Transmission Date: 20100525
  Serious: No
  Sender: FDA-Public Use
  Company Number: US-ASTRAZENECA-2009SE16212

PATIENT
  Age: 70 Year
  Sex: Female
  Weight: 56.7 kg

DRUGS (4)
  1. CRESTOR [Suspect]
     Indication: BLOOD CHOLESTEROL INCREASED
     Route: 048
     Dates: start: 20090807, end: 20090821
  2. CRESTOR [Suspect]
     Route: 048
     Dates: start: 20090828
  3. FOSAMAX [Concomitant]
  4. MINOXIDIL [Concomitant]

REACTIONS (2)
  - FATIGUE [None]
  - PAIN IN EXTREMITY [None]
